FAERS Safety Report 17420414 (Version 1)
Quarter: 2020Q1

REPORT INFORMATION
  Report Type: Spontaneous
  Country: US (occurrence: US)
  Receive Date: 20200130
  Receipt Date: 20200130
  Transmission Date: 20200409
  Serious: No
  Sender: FDA-Public Use
  Company Number: None

PATIENT
  Age: 42 Year
  Sex: Female
  Weight: 58.97 kg

DRUGS (1)
  1. ELDERBERRY SYRUP [Suspect]
     Active Substance: DIETARY SUPPLEMENT\HERBALS
     Indication: ANTIVIRAL PROPHYLAXIS
     Route: 048
     Dates: start: 20200121, end: 20200121

REACTIONS (3)
  - Nausea [None]
  - Suspected product quality issue [None]
  - Diarrhoea [None]

NARRATIVE: CASE EVENT DATE: 20200121
